FAERS Safety Report 16047695 (Version 1)
Quarter: 2019Q1

REPORT INFORMATION
  Report Type: Spontaneous
  Country: IT (occurrence: IT)
  Receive Date: 20190307
  Receipt Date: 20190307
  Transmission Date: 20190418
  Serious: Yes (Hospitalization, Disabling)
  Sender: FDA-Public Use
  Company Number: IT-JNJFOC-20190240132

PATIENT
  Age: 75 Year
  Sex: Male
  Weight: 85 kg

DRUGS (9)
  1. ACICLOVIR [Concomitant]
     Active Substance: ACYCLOVIR
     Indication: ANTIFUNGAL PROPHYLAXIS
     Route: 048
     Dates: start: 20180424
  2. BACTRIM [Concomitant]
     Active Substance: SULFAMETHOXAZOLE\TRIMETHOPRIM
     Indication: ANTIBIOTIC PROPHYLAXIS
     Dosage: 160MG AND 800MG
     Route: 048
     Dates: start: 20180424
  3. CARDIOASAWIN [Concomitant]
     Indication: PRODUCT USED FOR UNKNOWN INDICATION
     Route: 065
     Dates: start: 201901
  4. PANTORC [Concomitant]
     Active Substance: PANTOPRAZOLE SODIUM
     Indication: PRODUCT USED FOR UNKNOWN INDICATION
     Route: 065
     Dates: start: 201901
  5. IBRUTINIB [Suspect]
     Active Substance: IBRUTINIB
     Indication: PRODUCT USED FOR UNKNOWN INDICATION
     Route: 048
  6. ATORVASTATIN [Concomitant]
     Active Substance: ATORVASTATIN
     Indication: PRODUCT USED FOR UNKNOWN INDICATION
     Route: 065
     Dates: start: 201801
  7. RAMIPRIL. [Concomitant]
     Active Substance: RAMIPRIL
     Indication: PRODUCT USED FOR UNKNOWN INDICATION
     Route: 065
     Dates: start: 201901
  8. VENETOCLAX. [Suspect]
     Active Substance: VENETOCLAX
     Indication: PRODUCT USED FOR UNKNOWN INDICATION
     Route: 048
     Dates: start: 20180320
  9. BISOPROLOL [Concomitant]
     Active Substance: BISOPROLOL
     Indication: PRODUCT USED FOR UNKNOWN INDICATION
     Route: 065
     Dates: start: 201901

REACTIONS (2)
  - Fall [Not Recovered/Not Resolved]
  - Joint dislocation [Not Recovered/Not Resolved]

NARRATIVE: CASE EVENT DATE: 20190217
